FAERS Safety Report 19597986 (Version 1)
Quarter: 2021Q3

REPORT INFORMATION
  Report Type: Spontaneous
  Country: US (occurrence: US)
  Receive Date: 20210722
  Receipt Date: 20210722
  Transmission Date: 20211014
  Serious: Yes (Disabling, Other)
  Sender: FDA-Public Use
  Company Number: None

PATIENT
  Age: 32 Year
  Sex: Female
  Weight: 69.75 kg

DRUGS (1)
  1. CORTISONE [Suspect]
     Active Substance: CORTISONE
     Indication: ECZEMA
     Route: 061

REACTIONS (8)
  - Condition aggravated [None]
  - Skin weeping [None]
  - Impaired work ability [None]
  - Haemorrhage [None]
  - Erythema [None]
  - Withdrawal syndrome [None]
  - Scab [None]
  - Inflammation [None]

NARRATIVE: CASE EVENT DATE: 20200101
